FAERS Safety Report 22633195 (Version 1)
Quarter: 2023Q2

REPORT INFORMATION
  Report Type: Spontaneous
  Country: ES (occurrence: ES)
  Receive Date: 20230623
  Receipt Date: 20230623
  Transmission Date: 20230722
  Serious: Yes (Hospitalization, Other)
  Sender: FDA-Public Use
  Company Number: ES-AEMPS-1378382

PATIENT
  Age: 86 Year
  Sex: Male

DRUGS (5)
  1. MEROPENEM [Suspect]
     Active Substance: MEROPENEM
     Indication: Sepsis
     Dosage: 1 GRAM, 3 TIMES A DAY
     Route: 042
     Dates: start: 20230521, end: 20230521
  2. CEFTRIAXONE [Suspect]
     Active Substance: CEFTRIAXONE
     Indication: Sepsis
     Dosage: 2 GRAM, ONCE A DAY, 2 GRAMS EVERY 24 HOURS (2 DOSES)
     Route: 042
     Dates: start: 20230520, end: 20230521
  3. METAMIZOL [Suspect]
     Active Substance: METAMIZOLE SODIUM
     Indication: Pyrexia
     Dosage: 575 MILLIGRAM, 3 TIMES A DAY
     Route: 048
     Dates: start: 20230520, end: 20230520
  4. OMEPRAZOLE [Suspect]
     Active Substance: OMEPRAZOLE
     Indication: Intestinal haemorrhage
     Dosage: 40 MILLIGRAM, TWO TIMES A DAY
     Route: 042
     Dates: start: 20230519, end: 20230522
  5. LINEZOLID [Concomitant]
     Active Substance: LINEZOLID
     Indication: Sepsis
     Dosage: 600 MILLIGRAM, TWO TIMES A DAY
     Route: 042
     Dates: start: 20230521, end: 20230526

REACTIONS (1)
  - Tubulointerstitial nephritis [Recovered/Resolved]

NARRATIVE: CASE EVENT DATE: 20230521
